FAERS Safety Report 6595030-8 (Version None)
Quarter: 2010Q1

REPORT INFORMATION
  Report Type: 
  Country: None (occurrence: None)
  Receive Date: 20100218
  Receipt Date: 20100218
  Transmission Date: 20100710
  Serious: No
  Sender: FDA-Public Use
  Company Number: None

PATIENT
  Age: 22 Year
  Sex: Male
  Weight: 83.9154 kg

DRUGS (1)
  1. BENZTROPINE MESYLATE [Suspect]
     Dosage: 1 MG BID PO
     Route: 048

REACTIONS (1)
  - VASCULITIC RASH [None]
